FAERS Safety Report 8585482-6 (Version None)
Quarter: 2012Q3

REPORT INFORMATION
  Report Type: 
  Country: None (occurrence: None)
  Receive Date: 20120810
  Receipt Date: 20120224
  Transmission Date: 20120928
  Serious: No
  Sender: FDA-Public Use
  Company Number: US-GLAXOSMITHKLINE-A0967386A

PATIENT
  Age: 72 Year
  Sex: Female

DRUGS (5)
  1. LISINOPRIL [Concomitant]
  2. REQUIP XL [Suspect]
     Indication: PARKINSON'S DISEASE
     Dosage: 2MG PER DAY
     Route: 048
     Dates: start: 20120223
  3. CELEBREX [Concomitant]
  4. PAROXETINE [Concomitant]
  5. FOSAMAX [Concomitant]

REACTIONS (6)
  - PAIN [None]
  - MENTAL IMPAIRMENT [None]
  - SLUGGISHNESS [None]
  - MUSCULOSKELETAL STIFFNESS [None]
  - NAUSEA [None]
  - DIZZINESS [None]
